FAERS Safety Report 9665253 (Version 2)
Quarter: 2013Q4

REPORT INFORMATION
  Report Type: Report from Study
  Country: JP (occurrence: JP)
  Receive Date: 20131101
  Receipt Date: 20131101
  Transmission Date: 20140711
  Serious: Yes (Hospitalization)
  Sender: FDA-Public Use
  Company Number: JP-ABBVIE-07P-087-0418599-00

PATIENT
  Age: 40 Year
  Sex: Male

DRUGS (25)
  1. NORVIR SOFT GELATIN CAPSULES [Suspect]
     Indication: HIV INFECTION
     Route: 048
     Dates: start: 20041221, end: 20050121
  2. NORVIR SOFT GELATIN CAPSULES [Suspect]
     Route: 048
     Dates: start: 20050622, end: 20070510
  3. NORVIR SOFT GELATIN CAPSULES [Suspect]
     Dates: start: 20110119, end: 20110630
  4. KALETRA [Suspect]
     Indication: HIV INFECTION
     Dates: start: 20040514, end: 20040530
  5. KALETRA [Suspect]
     Route: 048
     Dates: start: 20070511, end: 20091016
  6. REYATAZ [Suspect]
     Indication: HIV INFECTION
     Route: 048
     Dates: start: 20041221, end: 20050121
  7. REYATAZ [Suspect]
     Route: 048
     Dates: start: 20050622, end: 20070510
  8. EPIVIR [Suspect]
     Indication: HIV INFECTION
     Route: 048
     Dates: start: 20050722, end: 20050802
  9. EPIVIR [Suspect]
     Route: 048
     Dates: start: 20050803, end: 20071213
  10. VIREAD [Suspect]
     Indication: HIV INFECTION
     Route: 048
     Dates: start: 20050802, end: 20071213
  11. VIREAD [Suspect]
     Dates: start: 20090717
  12. COMBIVIR [Suspect]
     Indication: HIV INFECTION
     Dates: start: 20040514, end: 20050121
  13. COMBIVIR [Suspect]
     Dates: start: 20050622, end: 20050722
  14. RETROVIR [Suspect]
     Indication: PRODUCT USED FOR UNKNOWN INDICATION
     Dates: start: 20050722, end: 20050802
  15. TRUVADA [Suspect]
     Indication: HIV INFECTION
     Route: 048
     Dates: start: 20071214, end: 20101001
  16. TRUVADA [Suspect]
     Dates: start: 20110701
  17. RALTEGRAVIR [Suspect]
     Indication: HIV INFECTION
     Route: 048
     Dates: start: 20091016, end: 20100930
  18. EFAVIRENZ [Suspect]
     Indication: HIV INFECTION
     Route: 048
     Dates: start: 20040614, end: 20041221
  19. EFAVIRENZ [Suspect]
     Route: 048
     Dates: start: 20051209, end: 20070711
  20. EFAVIRENZ [Suspect]
     Route: 048
     Dates: start: 20090717, end: 20091016
  21. EFAVIRENZ [Suspect]
     Dates: start: 20091016, end: 20100930
  22. EMTRICITABINE W/TENOFOVIR [Concomitant]
     Indication: HIV INFECTION
     Route: 048
     Dates: start: 20071214
  23. LAMIVUDINE/ABACAVIR [Concomitant]
     Indication: PRODUCT USED FOR UNKNOWN INDICATION
     Dates: start: 20110119, end: 20110630
  24. DARUNAVIR [Concomitant]
     Indication: PRODUCT USED FOR UNKNOWN INDICATION
     Dates: start: 20110119
  25. NORVIR [Concomitant]
     Indication: PRODUCT USED FOR UNKNOWN INDICATION
     Dates: start: 20110701

REACTIONS (2)
  - Diabetes mellitus inadequate control [Unknown]
  - Diabetes mellitus [Not Recovered/Not Resolved]
